FAERS Safety Report 14381336 (Version 1)
Quarter: 2018Q1

REPORT INFORMATION
  Report Type: Spontaneous
  Country: US (occurrence: US)
  Receive Date: 20180111
  Receipt Date: 20180111
  Transmission Date: 20180509
  Serious: Yes (Death)
  Sender: FDA-Public Use
  Company Number: None

PATIENT
  Age: 4 Year
  Sex: Male
  Weight: 14.5 kg

DRUGS (1)
  1. ARRANON [Suspect]
     Active Substance: NELARABINE
     Indication: ACUTE LYMPHOCYTIC LEUKAEMIA
     Route: 042
     Dates: start: 20171211, end: 20171215

REACTIONS (2)
  - Pneumonia [None]
  - Histiocytosis haematophagic [None]

NARRATIVE: CASE EVENT DATE: 20180107
